FAERS Safety Report 5119770-2 (Version None)
Quarter: 2006Q4

REPORT INFORMATION
  Report Type: 
  Country: None (occurrence: None)
  Receive Date: 20061003
  Receipt Date: 20060921
  Transmission Date: 20070319
  Serious: Yes (Other)
  Sender: FDA-Public Use
  Company Number: PHBS2006CA14641

PATIENT
  Age: 61 Year
  Sex: Male

DRUGS (2)
  1. IMATINIB [Suspect]
     Indication: CHRONIC MYELOID LEUKAEMIA
     Route: 065
  2. IMATINIB [Suspect]
     Route: 065
     Dates: start: 20011001

REACTIONS (8)
  - BONE MARROW FAILURE [None]
  - CHROMOSOME ABNORMALITY [None]
  - CHRONIC MYELOID LEUKAEMIA [None]
  - FATIGUE [None]
  - HAEMOGLOBIN DECREASED [None]
  - MARROW HYPERPLASIA [None]
  - NEUTROPENIA [None]
  - PANCYTOPENIA [None]
